FAERS Safety Report 4794903-6 (Version None)
Quarter: 2005Q4

REPORT INFORMATION
  Report Type: 
  Country: None (occurrence: None)
  Receive Date: 20051012
  Receipt Date: 20051004
  Transmission Date: 20060501
  Serious: Yes (Other)
  Sender: FDA-Public Use
  Company Number: JP-BOEHRINGER INGELHEIM PHARMACEUTICALS, INC.-2005-DE-04088GD

PATIENT
  Sex: Female

DRUGS (6)
  1. DIPYRIDAMOLE [Suspect]
     Indication: THROMBOTIC THROMBOCYTOPENIC PURPURA
  2. DIPYRIDAMOLE [Suspect]
     Indication: HAEMOLYTIC URAEMIC SYNDROME
  3. ASPIRIN [Suspect]
     Indication: THROMBOTIC THROMBOCYTOPENIC PURPURA
  4. ASPIRIN [Suspect]
     Indication: HAEMOLYTIC URAEMIC SYNDROME
  5. STEROID [Suspect]
     Indication: THROMBOTIC THROMBOCYTOPENIC PURPURA
  6. STEROID [Suspect]
     Indication: HAEMOLYTIC URAEMIC SYNDROME

REACTIONS (3)
  - DRUG INEFFECTIVE [None]
  - HAEMODIALYSIS [None]
  - RENAL FAILURE CHRONIC [None]
